FAERS Safety Report 7676928-6 (Version None)
Quarter: 2011Q3

REPORT INFORMATION
  Report Type: 
  Country: None (occurrence: None)
  Receive Date: 20110811
  Receipt Date: 20110803
  Transmission Date: 20111222
  Serious: Yes (Hospitalization, Other)
  Sender: FDA-Public Use
  Company Number: PHFR2011GB00801

PATIENT
  Sex: Male

DRUGS (5)
  1. CLOZAPINE [Suspect]
     Dosage: 12.5 MG/DAY
     Route: 048
  2. VALPROATE SODIUM [Concomitant]
     Indication: SCHIZOPHRENIA
     Dosage: 400 MG, BID
     Route: 048
  3. CLOZAPINE [Suspect]
     Indication: SCHIZOPHRENIA
     Route: 048
     Dates: start: 20100910
  4. CLOZAPINE [Suspect]
     Dosage: 250 MG/DAY
     Route: 048
  5. CLOZAPINE [Suspect]
     Dosage: 125 MG
     Route: 048
     Dates: start: 20110119

REACTIONS (5)
  - MEDICATION ERROR [None]
  - INCORRECT DOSE ADMINISTERED [None]
  - FEELING ABNORMAL [None]
  - SOMNOLENCE [None]
  - TREATMENT NONCOMPLIANCE [None]
